FAERS Safety Report 8374280-4 (Version None)
Quarter: 2012Q2

REPORT INFORMATION
  Report Type: 
  Country: None (occurrence: None)
  Receive Date: 20120518
  Receipt Date: 20120518
  Transmission Date: 20120825
  Serious: Yes (Disabling, Other)
  Sender: FDA-Public Use
  Company Number: None

PATIENT
  Age: 25 Year
  Sex: Male
  Weight: 61.2356 kg

DRUGS (1)
  1. FINASTERIDE [Suspect]
     Indication: ALOPECIA
     Dosage: 1MG DAILY PO
     Route: 048
     Dates: start: 20100801, end: 20111001

REACTIONS (14)
  - DEPRESSION [None]
  - PANIC ATTACK [None]
  - INSOMNIA [None]
  - MUSCLE SPASMS [None]
  - ANORGASMIA [None]
  - TESTICULAR ATROPHY [None]
  - MEMORY IMPAIRMENT [None]
  - ANXIETY [None]
  - VERTIGO [None]
  - VISION BLURRED [None]
  - SEMEN VISCOSITY DECREASED [None]
  - PROSTATITIS [None]
  - FATIGUE [None]
  - COGNITIVE DISORDER [None]
